FAERS Safety Report 17110720 (Version 3)
Quarter: 2020Q1

REPORT INFORMATION
  Report Type: Spontaneous
  Country: US (occurrence: US)
  Receive Date: 20191204
  Receipt Date: 20200212
  Transmission Date: 20200409
  Serious: No
  Sender: FDA-Public Use
  Company Number: US-PFIZER INC-2019524180

PATIENT
  Age: 78 Year
  Sex: Female

DRUGS (1)
  1. PREMPRO [Suspect]
     Active Substance: ESTROGENS, CONJUGATED\MEDROXYPROGESTERONE ACETATE
     Indication: BONE DISORDER
     Dosage: UNK, 1X/DAY (1.5 OR 0.3 SOMETHING)

REACTIONS (6)
  - Muscle spasms [Unknown]
  - Malaise [Unknown]
  - Product use in unapproved indication [Unknown]
  - Pain in extremity [Unknown]
  - Off label use [Unknown]
  - Asthenia [Unknown]
